FAERS Safety Report 5745646-3 (Version None)
Quarter: 2008Q2

REPORT INFORMATION
  Report Type: 
  Country: None (occurrence: None)
  Receive Date: 20080521
  Receipt Date: 20080512
  Transmission Date: 20081010
  Serious: Yes (Other)
  Sender: FDA-Public Use
  Company Number: US-PFIZER INC-2008033044

PATIENT
  Sex: Male
  Weight: 79.5 kg

DRUGS (8)
  1. CHANTIX [Suspect]
     Indication: SMOKING CESSATION THERAPY
     Dates: start: 20071211, end: 20080405
  2. CHANTIX [Suspect]
     Indication: TOBACCO ABUSE
  3. METHYLPREDNISOLONE 16MG TAB [Suspect]
     Indication: RASH
  4. LISINOPRIL [Concomitant]
     Indication: HYPERTENSION
  5. LOVASTATIN [Concomitant]
     Indication: BLOOD CHOLESTEROL INCREASED
  6. FOLIC ACID [Concomitant]
  7. VITAMIN CAP [Concomitant]
  8. ACETYLSALICYLIC ACID SRT [Concomitant]

REACTIONS (2)
  - RASH [None]
  - URTICARIA [None]
